FAERS Safety Report 7742809-2 (Version None)
Quarter: 2011Q3

REPORT INFORMATION
  Report Type: 
  Country: None (occurrence: None)
  Receive Date: 20110831
  Receipt Date: 20110825
  Transmission Date: 20111222
  Serious: Yes (Other)
  Sender: FDA-Public Use
  Company Number: DSA_45156_2011

PATIENT
  Sex: Female

DRUGS (5)
  1. ATIVAN [Concomitant]
  2. XENAZINE [Suspect]
     Indication: DYSKINESIA
     Dosage: (25 MG QD ORAL)
     Route: 048
     Dates: start: 20110101, end: 20110701
  3. DILTIAZEM [Concomitant]
  4. AMBIEN [Concomitant]
  5. LISINOPRIL [Concomitant]

REACTIONS (9)
  - HERPES ZOSTER [None]
  - EXOPHTHALMOS [None]
  - AGITATION [None]
  - SWOLLEN TONGUE [None]
  - TRISMUS [None]
  - FEELING COLD [None]
  - DRY MOUTH [None]
  - BLOOD PRESSURE ABNORMAL [None]
  - HIATUS HERNIA [None]
